FAERS Safety Report 21056152 (Version 1)
Quarter: 2022Q3

REPORT INFORMATION
  Report Type: Other
  Country: US (occurrence: None)
  Receive Date: 20220708
  Receipt Date: 20220708
  Transmission Date: 20221026
  Serious: Yes (Other)
  Sender: FDA-Public Use
  Company Number: US-ROCHE-3116482

PATIENT
  Sex: Female
  Weight: 85.806 kg

DRUGS (2)
  1. OCREVUS [Suspect]
     Active Substance: OCRELIZUMAB
     Indication: Primary progressive multiple sclerosis
     Dosage: DATES OF TREATMENT: 23/DEC/2019, 07/JAN/2020, 13/AUG/2020, 30/MAR/2021, 27/OCT/2021, 21/JUN/2022
     Route: 042
     Dates: start: 20191223
  2. OCREVUS [Suspect]
     Active Substance: OCRELIZUMAB
     Indication: Relapsing-remitting multiple sclerosis

REACTIONS (2)
  - Alopecia [Not Recovered/Not Resolved]
  - Appendicitis [Unknown]
